FAERS Safety Report 10036428 (Version 2)
Quarter: 2015Q1

REPORT INFORMATION
  Report Type: Spontaneous
  Country: US (occurrence: US)
  Receive Date: 20140325
  Receipt Date: 20150123
  Transmission Date: 20150720
  Serious: No
  Sender: FDA-Public Use
  Company Number: US-009507513-1403USA010038

PATIENT

DRUGS (2)
  1. EMEND [Suspect]
     Active Substance: APREPITANT
     Route: 042
  2. HEXADROL [Suspect]
     Active Substance: DEXAMETHASONE
     Route: 048

REACTIONS (1)
  - Infusion site irritation [Unknown]
